FAERS Safety Report 5113727-3 (Version None)
Quarter: 2006Q3

REPORT INFORMATION
  Report Type: 
  Country: None (occurrence: None)
  Receive Date: 20060921
  Receipt Date: 20060921
  Transmission Date: 20061208
  Serious: Yes (Hospitalization)
  Sender: FDA-Public Use
  Company Number: None

PATIENT
  Age: 66 Year
  Sex: Male
  Weight: 75 kg

DRUGS (14)
  1. MYCOPHENOLATE MOFETIL [Suspect]
     Indication: IMMUNOSUPPRESSION
     Dosage: 500 MG  PO Q8 HOURS
     Route: 048
  2. BUPROPION HCL [Concomitant]
  3. SERTRALINE [Concomitant]
  4. CACO3 [Concomitant]
  5. ASPIRIN [Concomitant]
  6. FOLIC ACID [Concomitant]
  7. MAG OX [Concomitant]
  8. AMLODIPINE [Concomitant]
  9. METHYLPHENIDATE HCL [Concomitant]
  10. CLONIDINE [Concomitant]
  11. CHLORTHALIDONE [Concomitant]
  12. EZETIMIBE [Concomitant]
  13. LANSOPRAZOLE [Concomitant]
  14. METOPRO [Concomitant]

REACTIONS (3)
  - DIARRHOEA [None]
  - NAUSEA [None]
  - VOMITING [None]
